FAERS Safety Report 25355926 (Version 3)
Quarter: 2025Q3

REPORT INFORMATION
  Report Type: Spontaneous
  Country: US (occurrence: US)
  Receive Date: 20250525
  Receipt Date: 20250724
  Transmission Date: 20251020
  Serious: Yes (Death, Other)
  Sender: AIMMUNE
  Company Number: US-VIOKACE LLC-2025AIMT00488

PATIENT

DRUGS (2)
  1. VIOKACE [Suspect]
     Active Substance: PANCRELIPASE AMYLASE\PANCRELIPASE LIPASE\PANCRELIPASE PROTEASE
     Indication: Pancreatic carcinoma
     Route: 048
     Dates: start: 20250317
  2. VIOKACE [Suspect]
     Active Substance: PANCRELIPASE AMYLASE\PANCRELIPASE LIPASE\PANCRELIPASE PROTEASE
     Route: 048

REACTIONS (2)
  - Death [Fatal]
  - Atrial fibrillation [Unknown]
